FAERS Safety Report 5600400-8 (Version None)
Quarter: 2008Q1

REPORT INFORMATION
  Report Type: 
  Country: None (occurrence: None)
  Receive Date: 20080118
  Receipt Date: 20080104
  Transmission Date: 20080703
  Serious: Yes (Other)
  Sender: FDA-Public Use
  Company Number: A-US2008-19053

PATIENT
  Sex: Male

DRUGS (2)
  1. TRACLEER [Suspect]
     Indication: PULMONARY HYPERTENSION
     Dosage: ORAL
     Route: 048
  2. SILDENAFIL CITRATE [Concomitant]

REACTIONS (2)
  - INTERMEDIATE UVEITIS [None]
  - VITREOUS HAEMORRHAGE [None]
